FAERS Safety Report 20349741 (Version 1)
Quarter: 2022Q1

REPORT INFORMATION
  Report Type: Spontaneous
  Country: US (occurrence: None)
  Receive Date: 20220118
  Receipt Date: 20220118
  Transmission Date: 20220424
  Serious: No
  Sender: FDA-Public Use
  Company Number: None

PATIENT
  Age: 48 Year
  Sex: Female
  Weight: 70.31 kg

DRUGS (1)
  1. ENBREL [Suspect]
     Active Substance: ETANERCEPT
     Indication: Ankylosing spondylitis
     Dosage: INJECT 50MG SUBCUTANEOUSLY ONCE  WEEKLY  USING THE AUTO TOUCH DEVICE AS DIRECTED
     Route: 058
     Dates: start: 202107

REACTIONS (1)
  - Oesophageal operation [None]
